FAERS Safety Report 10191977 (Version 1)
Quarter: 2014Q2

REPORT INFORMATION
  Report Type: Spontaneous
  Country: US (occurrence: US)
  Receive Date: 20140523
  Receipt Date: 20140523
  Transmission Date: 20141212
  Serious: Yes (Other)
  Sender: FDA-Public Use
  Company Number: US-ASTRAZENECA-2014SE34278

PATIENT
  Age: 82 Year
  Sex: Female

DRUGS (2)
  1. BRILINTA [Suspect]
     Route: 048
     Dates: start: 201405
  2. COUMADIN [Concomitant]
     Dosage: UNKNOWN UNK

REACTIONS (1)
  - Eye haemorrhage [Unknown]
